FAERS Safety Report 24237283 (Version 1)
Quarter: 2024Q3

REPORT INFORMATION
  Report Type: Other
  Country: US (occurrence: US)
  Receive Date: 20240822
  Receipt Date: 20240822
  Transmission Date: 20241017
  Serious: Yes (Other)
  Sender: B BRAUN
  Company Number: US-B.Braun Medical Inc.-2160689

PATIENT
  Age: 60 Year
  Sex: Female

DRUGS (6)
  1. HEPARIN SODIUM IN DEXTROSE [Suspect]
     Active Substance: HEPARIN SODIUM
     Indication: Cardiac ventricular thrombosis
     Route: 040
  2. EPINEPHRINE [Concomitant]
     Active Substance: EPINEPHRINE
  3. ROCURONIUM [Concomitant]
     Active Substance: ROCURONIUM BROMIDE
  4. SEVOFLURANE [Concomitant]
     Active Substance: SEVOFLURANE
  5. PROPOFOL [Concomitant]
     Active Substance: PROPOFOL
  6. FENTANYL [Concomitant]
     Active Substance: FENTANYL\FENTANYL CITRATE

REACTIONS (1)
  - Drug ineffective [Unknown]
